FAERS Safety Report 15403524 (Version 3)
Quarter: 2019Q2

REPORT INFORMATION
  Report Type: Spontaneous
  Country: US (occurrence: US)
  Receive Date: 20180919
  Receipt Date: 20190415
  Transmission Date: 20190711
  Serious: Yes (Hospitalization)
  Sender: FDA-Public Use
  Company Number: US-SA-2018SA259488

PATIENT
  Age: 47 Year
  Sex: Male

DRUGS (4)
  1. FABRAZYME [Suspect]
     Active Substance: AGALSIDASE BETA
     Indication: FABRY^S DISEASE
     Dosage: 70 MG, 125ML/HR
     Route: 041
     Dates: start: 20170203
  2. ALLEGRA [Suspect]
     Active Substance: FEXOFENADINE HYDROCHLORIDE
  3. FABRAZYME [Suspect]
     Active Substance: AGALSIDASE BETA
     Dosage: 70 UNK
     Route: 041
  4. CHLORTHALIDONE. [Suspect]
     Active Substance: CHLORTHALIDONE
     Route: 065

REACTIONS (6)
  - Weight decreased [Unknown]
  - Feeling hot [Recovering/Resolving]
  - Feeling hot [Unknown]
  - Hyponatraemia [Unknown]
  - Unevaluable event [Unknown]
  - Burning sensation [Unknown]

NARRATIVE: CASE EVENT DATE: 201812
